FAERS Safety Report 20438125 (Version 1)
Quarter: 2022Q1

REPORT INFORMATION
  Report Type: Spontaneous
  Country: DE (occurrence: DE)
  Receive Date: 20220207
  Receipt Date: 20220207
  Transmission Date: 20220423
  Serious: No
  Sender: FDA-Public Use
  Company Number: None

PATIENT
  Age: 41 Year
  Sex: Male
  Weight: 62 kg

DRUGS (3)
  1. PREGABALIN [Suspect]
     Active Substance: PREGABALIN
     Indication: Depression
     Dosage: 350 MILLIGRAM, QD
     Route: 048
     Dates: start: 20201222
  2. LEVOMETHADONE [Suspect]
     Active Substance: LEVOMETHADONE
     Indication: Drug withdrawal maintenance therapy
     Dosage: 90 MILLIGRAM, QD
     Route: 048
     Dates: start: 20201222
  3. ZEPATIER [Suspect]
     Active Substance: ELBASVIR\GRAZOPREVIR
     Indication: Chronic hepatitis C
     Dosage: UNK UNK, QD
     Route: 048
     Dates: start: 20210930

REACTIONS (6)
  - Headache [Unknown]
  - Abdominal pain upper [Not Recovered/Not Resolved]
  - Leukocytosis [Recovered/Resolved]
  - Anal haemorrhage [Not Recovered/Not Resolved]
  - Decreased appetite [Not Recovered/Not Resolved]
  - Urinary tract infection [Not Recovered/Not Resolved]

NARRATIVE: CASE EVENT DATE: 20211007
